FAERS Safety Report 12010106 (Version 2)
Quarter: 2016Q1

REPORT INFORMATION
  Report Type: Spontaneous
  Country: KR (occurrence: KR)
  Receive Date: 20160205
  Receipt Date: 20160205
  Transmission Date: 20160526
  Serious: Yes (Hospitalization)
  Sender: FDA-Public Use
  Company Number: KR-ASTRAZENECA-2016SE11582

PATIENT
  Sex: Male

DRUGS (1)
  1. CRESTOR [Suspect]
     Active Substance: ROSUVASTATIN CALCIUM
     Route: 048

REACTIONS (3)
  - Facial paralysis [Recovered/Resolved]
  - Weight decreased [Not Recovered/Not Resolved]
  - Facial wasting [Not Recovered/Not Resolved]

NARRATIVE: CASE EVENT DATE: 2015
